FAERS Safety Report 6989927-4 (Version None)
Quarter: 2010Q3

REPORT INFORMATION
  Report Type: 
  Country: None (occurrence: None)
  Receive Date: 20100916
  Receipt Date: 20100322
  Transmission Date: 20110219
  Serious: Yes (Other)
  Sender: FDA-Public Use
  Company Number: ES-PFIZER INC-2010036907

PATIENT
  Age: 73 Year
  Sex: Female

DRUGS (10)
  1. LYRICA [Suspect]
     Indication: SCIATICA
     Dosage: 25 MG, 1X/DAY
     Route: 048
     Dates: start: 20091104, end: 20091111
  2. DURAGESIC-100 [Suspect]
     Indication: SCIATICA
     Dosage: 25 UG, UNK
     Route: 062
     Dates: start: 20091104, end: 20091113
  3. AMOXICILLIN AND CLAVULANATE POTASSIUM [Suspect]
     Indication: RESPIRATORY TRACT INFECTION
     Dosage: 1 G, 3X/DAY
     Route: 042
     Dates: start: 20091104, end: 20091111
  4. LEVOTHYROXINE [Concomitant]
     Indication: HYPOTHYROIDISM
     Dosage: 50 UG, 1X/DAY
     Route: 048
  5. HALOPERIDOL [Concomitant]
     Indication: AGITATION
     Dosage: UNK
     Dates: start: 20091104, end: 20091105
  6. PARACETAMOL [Concomitant]
     Indication: SCIATICA
     Dosage: 1 G, 3X/DAY
     Route: 042
     Dates: start: 20091031, end: 20091102
  7. OMEPRAZOLE [Concomitant]
     Indication: PROPHYLAXIS
     Dosage: 20 MG, 1X/DAY
     Route: 048
  8. CO-RENITEC [Concomitant]
     Indication: HYPERTENSION
     Dosage: 1 DF, 1X/DAY
     Route: 048
  9. NOLOTIL /SPA/ [Concomitant]
     Indication: SCIATICA
     Dosage: 2 G, 3X/DAY
     Route: 042
     Dates: start: 20091031, end: 20091120
  10. PRIMPERAN TAB [Concomitant]
     Indication: VOMITING
     Dosage: 10 MG, 3X/DAY
     Route: 042
     Dates: start: 20091104, end: 20091120

REACTIONS (1)
  - HYPERTRANSAMINASAEMIA [None]
